FAERS Safety Report 12882038 (Version 2)
Quarter: 2016Q4

REPORT INFORMATION
  Report Type: Spontaneous
  Country: FR (occurrence: FR)
  Receive Date: 20161025
  Receipt Date: 20161026
  Transmission Date: 20170207
  Serious: Yes (Hospitalization)
  Sender: FDA-Public Use
  Company Number: FR-SA-2016SA191903

PATIENT
  Age: 58 Year
  Sex: Male

DRUGS (8)
  1. CRESTOR [Concomitant]
     Active Substance: ROSUVASTATIN CALCIUM
     Route: 065
  2. LYRICA [Suspect]
     Active Substance: PREGABALIN
     Route: 048
     Dates: end: 201609
  3. DIAMICRON [Concomitant]
     Active Substance: GLICLAZIDE
     Dosage: MODIFIED RELEASE DIVISIBLE TABLET
     Route: 065
  4. LANTUS [Suspect]
     Active Substance: INSULIN GLARGINE
     Route: 058
     Dates: end: 201609
  5. METFORMIN [Concomitant]
     Active Substance: METFORMIN HYDROCHLORIDE
     Route: 065
  6. GABAPENTIN. [Suspect]
     Active Substance: GABAPENTIN
     Route: 048
     Dates: end: 201609
  7. CRESTOR [Concomitant]
     Active Substance: ROSUVASTATIN CALCIUM
     Route: 065
  8. COAPROVEL [Suspect]
     Active Substance: HYDROCHLOROTHIAZIDE\IRBESARTAN
     Dosage: COAPROVEL 300 MG/12.5 MG, TABLET
     Route: 048
     Dates: end: 201609

REACTIONS (3)
  - Confusional state [Recovered/Resolved]
  - Creatinine renal clearance decreased [Recovering/Resolving]
  - Agitation [Recovered/Resolved]

NARRATIVE: CASE EVENT DATE: 20160915
